FAERS Safety Report 5168080-6 (Version None)
Quarter: 2006Q4

REPORT INFORMATION
  Report Type: 
  Country: None (occurrence: None)
  Receive Date: 20061208
  Receipt Date: 20060918
  Transmission Date: 20070319
  Serious: No
  Sender: FDA-Public Use
  Company Number: US-GLAXOSMITHKLINE-A0620556A

PATIENT
  Sex: Female

DRUGS (14)
  1. AVANDAMET [Suspect]
     Dosage: 1TAB TWICE PER DAY
     Route: 048
     Dates: start: 20060701
  2. PRANDIN [Concomitant]
  3. METOPROLOL SUCCINATE [Concomitant]
  4. BENAZAPRIL [Concomitant]
  5. NORVASC [Concomitant]
  6. NASACORT [Concomitant]
  7. ASTELIN [Concomitant]
  8. SYNTHROID [Concomitant]
  9. ZETIA [Concomitant]
  10. TRICOR [Concomitant]
  11. METOCLOPRAMIDE [Concomitant]
  12. ZOLOFT [Concomitant]
  13. GLUCOSAMINE CHONDROITIN [Concomitant]
  14. ASPIRIN [Concomitant]

REACTIONS (2)
  - MUSCLE SPASMS [None]
  - PERIPHERAL COLDNESS [None]
